FAERS Safety Report 7037805-7 (Version None)
Quarter: 2010Q4

REPORT INFORMATION
  Report Type: 
  Country: None (occurrence: None)
  Receive Date: 20101011
  Receipt Date: 20100929
  Transmission Date: 20110411
  Serious: Yes (Other)
  Sender: FDA-Public Use
  Company Number: AR-ROCHE-730009

PATIENT
  Age: 76 Year
  Sex: Female

DRUGS (1)
  1. ACTEMRA [Suspect]
     Indication: RHEUMATOID ARTHRITIS
     Dosage: FORM: INFUSION.
     Route: 042
     Dates: start: 20100501, end: 20100824

REACTIONS (4)
  - CONJUNCTIVAL DISORDER [None]
  - DERMATITIS EXFOLIATIVE [None]
  - HYPOTENSION [None]
  - NAUSEA [None]
